FAERS Safety Report 8281947-5 (Version None)
Quarter: 2012Q2

REPORT INFORMATION
  Report Type: 
  Country: None (occurrence: None)
  Receive Date: 20120413
  Receipt Date: 20110725
  Transmission Date: 20120825
  Serious: Yes (Hospitalization)
  Sender: FDA-Public Use
  Company Number: US-PFIZER INC-2011168655

PATIENT
  Sex: Female
  Weight: 61.224 kg

DRUGS (4)
  1. MULTI-VITAMINS [Concomitant]
     Dosage: DAILY
  2. LOVASTATIN [Concomitant]
     Indication: BLOOD CHOLESTEROL INCREASED
     Dosage: DAILY
  3. PENICILLIN G BENZATHINE AND PENICILLIN G PROCAINE [Suspect]
     Dosage: UNK
  4. ESTRADIOL [Concomitant]
     Indication: MENOPAUSE
     Dosage: DAILY

REACTIONS (1)
  - HYPERSENSITIVITY [None]
